FAERS Safety Report 18568956 (Version 1)
Quarter: 2020Q4

REPORT INFORMATION
  Report Type: Spontaneous
  Country: US (occurrence: US)
  Receive Date: 20201201
  Receipt Date: 20201201
  Transmission Date: 20210114
  Serious: No
  Sender: FDA-Public Use
  Company Number: None

PATIENT
  Age: 61 Year
  Sex: Female
  Weight: 72.23 kg

DRUGS (5)
  1. IBRANCE [Suspect]
     Active Substance: PALBOCICLIB
     Indication: BREAST CANCER
     Dosage: ?          OTHER FREQUENCY:DAILY FOR 21/28D;?
     Route: 048
     Dates: start: 20200213, end: 20201201
  2. AROMASIN [Concomitant]
     Active Substance: EXEMESTANE
  3. PROVENTIL [Concomitant]
     Active Substance: ALBUTEROL
  4. PREVACID [Concomitant]
     Active Substance: LANSOPRAZOLE
  5. DULERA [Concomitant]
     Active Substance: FORMOTEROL FUMARATE DIHYDRATE\MOMETASONE FUROATE

REACTIONS (9)
  - Gastrooesophageal reflux disease [None]
  - Stomatitis [None]
  - Swelling [None]
  - Respiratory disorder [None]
  - Alopecia [None]
  - Rhinalgia [None]
  - Weight decreased [None]
  - Gastric disorder [None]
  - Oesophageal disorder [None]

NARRATIVE: CASE EVENT DATE: 20201201
